FAERS Safety Report 14651868 (Version 1)
Quarter: 2018Q1

REPORT INFORMATION
  Report Type: Report from Study
  Country: AT (occurrence: AT)
  Receive Date: 20180317
  Receipt Date: 20180317
  Transmission Date: 20180509
  Serious: Yes (Other)
  Sender: FDA-Public Use
  Company Number: AT-TAKEDA-2017MPI004872

PATIENT

DRUGS (8)
  1. EVEROLIMUS. [Concomitant]
     Active Substance: EVEROLIMUS
     Dosage: UNK
     Route: 065
  2. PREDNISOLONE. [Concomitant]
     Active Substance: PREDNISOLONE
     Dosage: UNK
     Route: 065
  3. TACROLIMUS. [Concomitant]
     Active Substance: TACROLIMUS
     Dosage: UNK
     Route: 048
  4. CYCLOSPORIN A [Concomitant]
     Active Substance: CYCLOSPORINE
     Dosage: UNK
     Route: 065
  5. VALACYCLOVIR [Concomitant]
     Active Substance: VALACYCLOVIR HYDROCHLORIDE
     Dosage: UNK
     Route: 065
  6. MYCOPHENOLATE MOFETIL. [Concomitant]
     Active Substance: MYCOPHENOLATE MOFETIL
     Dosage: UNK
     Route: 065
  7. SIROLIMUS. [Concomitant]
     Active Substance: SIROLIMUS
     Dosage: UNK
     Route: 065
  8. VELCADE [Suspect]
     Active Substance: BORTEZOMIB
     Indication: PROPHYLAXIS AGAINST TRANSPLANT REJECTION
     Dosage: 1.3 MG/M2, UNK
     Route: 042

REACTIONS (5)
  - Haematotoxicity [Unknown]
  - Off label use [Unknown]
  - Adverse event [Unknown]
  - Product use in unapproved indication [Unknown]
  - Gastrointestinal toxicity [Unknown]
